FAERS Safety Report 9679994 (Version 1)
Quarter: 2013Q4

REPORT INFORMATION
  Report Type: Report from Study
  Country: US (occurrence: US)
  Receive Date: 20131110
  Receipt Date: 20131110
  Transmission Date: 20140711
  Serious: Yes (Hospitalization, Other)
  Sender: FDA-Public Use
  Company Number: PHEH2013US023344

PATIENT
  Sex: Male

DRUGS (1)
  1. EXFORGE [Suspect]
     Dosage: 5 MG, UNK

REACTIONS (4)
  - Cardiac disorder [Unknown]
  - Pharyngeal oedema [Unknown]
  - Local swelling [Unknown]
  - Malaise [Unknown]
